FAERS Safety Report 22220841 (Version 9)
Quarter: 2024Q3

REPORT INFORMATION
  Report Type: Spontaneous
  Country: IT (occurrence: IT)
  Receive Date: 20230418
  Receipt Date: 20240712
  Transmission Date: 20241017
  Serious: Yes (Other)
  Sender: CELLTRION
  Company Number: IT-CELLTRION INC.-2023IT007647

PATIENT

DRUGS (9)
  1. BEVACIZUMAB [Suspect]
     Active Substance: BEVACIZUMAB
     Indication: Hepatocellular carcinoma
     Dosage: 1000 MILLIGRAM
     Route: 065
     Dates: start: 20230228
  2. ATEZOLIZUMAB [Suspect]
     Active Substance: ATEZOLIZUMAB
     Indication: Hepatocellular carcinoma
     Dosage: 1200 MILLIGRAM, EVERY 3 WEEK;ON 28/MAR/2023 AND 30/MAY/2023, RECEIVED MOST RECENT DOSE OF STUDY DRUG
     Route: 042
     Dates: start: 20230228
  3. CANDETENS [AMLODIPINE BESILATE;CANDESARTAN CILEXETIL] [Concomitant]
     Dosage: EVERY 1 DAY
  4. FINASTERIDE;TAMSULOSIN [Concomitant]
     Dosage: UNK, ONCE A DAY
  5. PANTOPRAZOLE [Concomitant]
     Active Substance: PANTOPRAZOLE
     Indication: Prophylaxis
     Dosage: UNK, ONCE A DAY
     Dates: start: 20230627
  6. FONDAPARINUX [Concomitant]
     Active Substance: FONDAPARINUX
     Dosage: UNK, EVERY 1 DAY
     Dates: start: 20230928
  7. AMLODIPINE\CANDESARTAN CILEXETIL [Concomitant]
     Active Substance: AMLODIPINE\CANDESARTAN CILEXETIL
     Dosage: UNK, EVERY 1 DAY
     Dates: start: 20231016
  8. SORAFENIB [Concomitant]
     Active Substance: SORAFENIB
     Dosage: UNK
     Dates: start: 20231009, end: 20231211
  9. RINOVAGOS [Concomitant]
     Dosage: EVERY 0.5 DAY
     Dates: start: 20231024, end: 20231124

REACTIONS (6)
  - Hyperthyroidism [Recovered/Resolved]
  - Hypothyroidism [Not Recovered/Not Resolved]
  - Autoimmune thyroiditis [Not Recovered/Not Resolved]
  - Melaena [Recovered/Resolved]
  - Diarrhoea [Recovered/Resolved]
  - Intentional product use issue [Unknown]

NARRATIVE: CASE EVENT DATE: 20230328
